FAERS Safety Report 14672968 (Version 4)
Quarter: 2018Q2

REPORT INFORMATION
  Report Type: Spontaneous
  Country: PT (occurrence: PT)
  Receive Date: 20180323
  Receipt Date: 20180609
  Transmission Date: 20180711
  Serious: Yes (Hospitalization, Other)
  Sender: FDA-Public Use
  Company Number: PT-AUROBINDO-AUR-APL-2018-013115

PATIENT
  Age: 8 Year
  Sex: Female

DRUGS (6)
  1. NIMESULIDE [Suspect]
     Active Substance: NIMESULIDE
     Indication: OROPHARYNGEAL PAIN
     Dosage: UNK
     Route: 065
  2. PARACETAMOL [Suspect]
     Active Substance: ACETAMINOPHEN
     Indication: RHINORRHOEA
  3. NIMESULIDE [Suspect]
     Active Substance: NIMESULIDE
     Indication: RHINORRHOEA
     Dosage: UNK
     Route: 065
  4. IRON [Concomitant]
     Active Substance: IRON
     Indication: IRON DEFICIENCY ANAEMIA
     Dosage: UNK
     Route: 065
  5. PARACETAMOL [Suspect]
     Active Substance: ACETAMINOPHEN
     Indication: OROPHARYNGEAL PAIN
     Dosage: UNK
     Route: 065
  6. NIMESULIDE [Suspect]
     Active Substance: NIMESULIDE
     Dosage: ()
     Route: 065

REACTIONS (6)
  - Toxic epidermal necrolysis [Recovered/Resolved with Sequelae]
  - Overlap syndrome [Recovered/Resolved]
  - Stevens-Johnson syndrome [Recovered/Resolved with Sequelae]
  - Obliterative bronchiolitis [Recovered/Resolved]
  - Off label use [Recovered/Resolved with Sequelae]
  - Pancreatitis acute [Recovered/Resolved]
